FAERS Safety Report 5059284-1 (Version None)
Quarter: 2006Q2

REPORT INFORMATION
  Report Type: 
  Country: None (occurrence: None)
  Receive Date: 20060629
  Receipt Date: 20060425
  Transmission Date: 20061013
  Serious: No
  Sender: FDA-Public Use
  Company Number: PHEH2006US05531

PATIENT
  Age: 68 Year
  Sex: Female

DRUGS (1)
  1. ENABLEX [Suspect]
     Dosage: ONE TAB, QD, ORAL
     Route: 048

REACTIONS (1)
  - OEDEMA PERIPHERAL [None]
